FAERS Safety Report 25774717 (Version 1)
Quarter: 2025Q3

REPORT INFORMATION
  Report Type: Spontaneous
  Country: US (occurrence: US)
  Receive Date: 20250908
  Receipt Date: 20250908
  Transmission Date: 20251020
  Serious: Yes (Life-Threatening, Hospitalization)
  Sender: AMGEN
  Company Number: US-AMGEN-USASP2025170596

PATIENT
  Age: 63 Year
  Sex: Male

DRUGS (10)
  1. PREDNISONE [Suspect]
     Active Substance: PREDNISONE
     Indication: Immunosuppressant drug therapy
     Dosage: 20 MILLIGRAM, QD
     Route: 065
  2. METHYLPREDNISOLONE [Concomitant]
     Active Substance: METHYLPREDNISOLONE
     Indication: Immunosuppressant drug therapy
     Route: 040
  3. MYCOPHENOLATE MOFETIL [Concomitant]
     Active Substance: MYCOPHENOLATE MOFETIL
     Indication: Immunosuppressant drug therapy
     Route: 040
  4. MYCOPHENOLATE MOFETIL [Concomitant]
     Active Substance: MYCOPHENOLATE MOFETIL
     Dosage: 1 GRAM, BID
  5. TACROLIMUS [Concomitant]
     Active Substance: TACROLIMUS
     Indication: Immunosuppressant drug therapy
     Route: 065
  6. TACROLIMUS [Concomitant]
     Active Substance: TACROLIMUS
     Dosage: 2 MILLIGRAM, BID
     Route: 065
  7. LETERMOVIR [Concomitant]
     Active Substance: LETERMOVIR
     Indication: Infection prophylaxis
     Dosage: 480 MILLIGRAM, QD (INTENDED DURATION: 3 MONTHS)
     Route: 065
  8. FAMCICLOVIR [Concomitant]
     Active Substance: FAMCICLOVIR
     Indication: Infection prophylaxis
     Dosage: 500 MILLIGRAM, BID (3 MONTHS)
     Route: 065
  9. SULFAMETHOXAZOLE\TRIMETHOPRIM [Concomitant]
     Active Substance: SULFAMETHOXAZOLE\TRIMETHOPRIM
     Indication: Infection prophylaxis
     Dosage: DAILY (6 MONTHS)
  10. NYSTATIN [Concomitant]
     Active Substance: NYSTATIN
     Indication: Infection prophylaxis
     Dosage: SWISH AND SWALLOW EVERY 6 H (12 MONTHS)
     Route: 065

REACTIONS (5)
  - Strongyloidiasis [Recovering/Resolving]
  - Acute respiratory failure [Recovering/Resolving]
  - Enterococcal infection [Recovering/Resolving]
  - Antimicrobial susceptibility test resistant [Recovering/Resolving]
  - Ileus [Recovered/Resolved]
